FAERS Safety Report 5606268-8 (Version None)
Quarter: 2008Q1

REPORT INFORMATION
  Report Type: 
  Country: None (occurrence: None)
  Receive Date: 20080129
  Receipt Date: 20070410
  Transmission Date: 20080703
  Serious: No
  Sender: FDA-Public Use
  Company Number: A0646865A

PATIENT
  Sex: Female

DRUGS (1)
  1. BUPROPION HYDROCHLORIDE [Suspect]
     Indication: DRUG USE FOR UNKNOWN INDICATION
     Dosage: 150MG UNKNOWN
     Route: 048

REACTIONS (7)
  - APATHY [None]
  - APTYALISM [None]
  - CRYING [None]
  - DRY THROAT [None]
  - DYSPNOEA [None]
  - HYPERSENSITIVITY [None]
  - IRIS HYPERPIGMENTATION [None]
